FAERS Safety Report 9146346 (Version 2)
Quarter: 2013Q2

REPORT INFORMATION
  Report Type: Spontaneous
  Country: BR (occurrence: BR)
  Receive Date: 20130307
  Receipt Date: 20130516
  Transmission Date: 20140414
  Serious: Yes (Hospitalization)
  Sender: FDA-Public Use
  Company Number: BR-PFIZER INC-2013076290

PATIENT
  Age: 62 Year
  Sex: Female
  Weight: 72 kg

DRUGS (3)
  1. LYRICA [Suspect]
     Indication: CARPAL TUNNEL SYNDROME
     Dosage: 75 MG, 2X/DAY (ONE CAPSULE EVERY 12 HOURS)
     Route: 048
     Dates: start: 201212
  2. CLIANE [Concomitant]
     Indication: HORMONE REPLACEMENT THERAPY
     Dosage: 1 DF, 1X/DAY
     Dates: start: 1998
  3. AMITRIPTYLINE [Concomitant]
     Indication: BLADDER DISORDER
     Dosage: 1 DF, 1X/DAY
     Dates: start: 201203

REACTIONS (2)
  - Carpal tunnel syndrome [Recovering/Resolving]
  - Off label use [Not Recovered/Not Resolved]
